FAERS Safety Report 8164993-1 (Version None)
Quarter: 2012Q1

REPORT INFORMATION
  Report Type: 
  Country: None (occurrence: None)
  Receive Date: 20120227
  Receipt Date: 20120213
  Transmission Date: 20120608
  Serious: Yes (Other)
  Sender: FDA-Public Use
  Company Number: BR-RANBAXY-2012R5-52733

PATIENT

DRUGS (2)
  1. OXCARBAZEPINE [Suspect]
     Indication: CEREBROSCLEROSIS
     Dosage: 3 TABLETS AND A HALF /DAY
     Route: 048
     Dates: start: 20120101
  2. PRISTIQ [Concomitant]
     Indication: DEPRESSION
     Dosage: 50 MG, QD
     Route: 065

REACTIONS (1)
  - DRUG INEFFECTIVE [None]
